FAERS Safety Report 14882308 (Version 1)
Quarter: 2018Q2

REPORT INFORMATION
  Report Type: Report from Study
  Country: FR (occurrence: FR)
  Receive Date: 20180511
  Receipt Date: 20180511
  Transmission Date: 20180711
  Serious: Yes (Hospitalization, Other)
  Sender: FDA-Public Use
  Company Number: FR-GUERBET-FR-20180257

PATIENT
  Age: 63 Year
  Sex: Female

DRUGS (1)
  1. OPTIJECT 350 [Suspect]
     Active Substance: IOVERSOL
     Indication: CHEST SCAN
     Route: 042
     Dates: start: 20180430, end: 20180430

REACTIONS (5)
  - Dyspnoea [Recovering/Resolving]
  - Type I hypersensitivity [Recovering/Resolving]
  - Dysphonia [Recovering/Resolving]
  - Laryngeal discomfort [Recovering/Resolving]
  - Abdominal pain [Recovering/Resolving]

NARRATIVE: CASE EVENT DATE: 20180430
